FAERS Safety Report 19442489 (Version 1)
Quarter: 2021Q2

REPORT INFORMATION
  Report Type: Spontaneous
  Country: US (occurrence: US)
  Receive Date: 20210619
  Receipt Date: 20210619
  Transmission Date: 20210717
  Serious: No
  Sender: FDA-Public Use
  Company Number: None

PATIENT
  Age: 54 Year
  Sex: Female
  Weight: 58.05 kg

DRUGS (11)
  1. EVENING PRIMROSE [Concomitant]
  2. LECITHIN [Concomitant]
     Active Substance: LECITHIN
  3. VITAMIN B12 [Concomitant]
     Active Substance: CYANOCOBALAMIN
  4. VITAMIN E [Concomitant]
     Active Substance: .ALPHA.-TOCOPHEROL
  5. VITAMIN D [Concomitant]
     Active Substance: VITAMIN D NOS
  6. BOTOX [Suspect]
     Active Substance: ONABOTULINUMTOXINA
     Indication: SKIN WRINKLING
     Dates: start: 20180206, end: 20180206
  7. VITAMIN K [Concomitant]
     Active Substance: PHYTONADIONE
  8. COLLAGEN PEPTIDES [Concomitant]
  9. HRT [Concomitant]
     Active Substance: UNSPECIFIED INGREDIENT
  10. PROBIOTIC [Concomitant]
     Active Substance: PROBIOTICS NOS
  11. NASACORT [Concomitant]
     Active Substance: TRIAMCINOLONE ACETONIDE

REACTIONS (28)
  - Influenza [None]
  - Nausea [None]
  - Dyspepsia [None]
  - Dry eye [None]
  - Asthenia [None]
  - Vertigo [None]
  - Headache [None]
  - Hypohidrosis [None]
  - Visual impairment [None]
  - Malaise [None]
  - Anxiety [None]
  - Lymphadenopathy [None]
  - Feeling abnormal [None]
  - Pollakiuria [None]
  - Fatigue [None]
  - Neck pain [None]
  - Depression [None]
  - Gingival pain [None]
  - Dizziness [None]
  - Pain [None]
  - Formication [None]
  - Lacrimation decreased [None]
  - Muscle atrophy [None]
  - Decreased appetite [None]
  - Paraesthesia [None]
  - Urinary tract infection [None]
  - Arthralgia [None]
  - Throat irritation [None]

NARRATIVE: CASE EVENT DATE: 20180206
